FAERS Safety Report 16759307 (Version 2)
Quarter: 2019Q3

REPORT INFORMATION
  Report Type: Report from Study
  Country: US (occurrence: US)
  Receive Date: 20190830
  Receipt Date: 20190911
  Transmission Date: 20191005
  Serious: No
  Sender: FDA-Public Use
  Company Number: US-ASTELLAS-2019US003910

PATIENT
  Age: 85 Year
  Sex: Male

DRUGS (2)
  1. ENZALUTAMIDE [Suspect]
     Active Substance: ENZALUTAMIDE
     Route: 048
     Dates: start: 201904
  2. ENZALUTAMIDE [Suspect]
     Active Substance: ENZALUTAMIDE
     Indication: PROSTATE CANCER
     Route: 048
     Dates: start: 201810, end: 20190409

REACTIONS (6)
  - Arthritis [Unknown]
  - Taste disorder [Unknown]
  - Nausea [Unknown]
  - Abdominal discomfort [Unknown]
  - Arthropathy [Unknown]
  - Hot flush [Unknown]

NARRATIVE: CASE EVENT DATE: 201810
